FAERS Safety Report 14590745 (Version 5)
Quarter: 2019Q2

REPORT INFORMATION
  Report Type: Report from Study
  Country: CA (occurrence: CA)
  Receive Date: 20180302
  Receipt Date: 20190403
  Transmission Date: 20190711
  Serious: Yes (Other)
  Sender: FDA-Public Use
  Company Number: PHHY2015CA037454

PATIENT
  Age: 41 Year
  Sex: Female

DRUGS (13)
  1. XOLAIR [Suspect]
     Active Substance: OMALIZUMAB
     Dosage: UNK
     Route: 058
     Dates: start: 20161201
  2. XOLAIR [Suspect]
     Active Substance: OMALIZUMAB
     Dosage: UNK
     Route: 058
     Dates: start: 20160908
  3. XOLAIR [Suspect]
     Active Substance: OMALIZUMAB
     Dosage: 450 MG, 4 WEEKS
     Route: 058
     Dates: start: 20171130
  4. XOLAIR [Suspect]
     Active Substance: OMALIZUMAB
     Indication: CHRONIC SPONTANEOUS URTICARIA
     Dosage: 450 MG, EVERY 4 WEEKS
     Route: 058
     Dates: start: 20190131
  5. CICLOSPORIN [Suspect]
     Active Substance: CYCLOSPORINE
     Indication: PRODUCT USED FOR UNKNOWN INDICATION
     Dosage: UNK
     Route: 065
  6. XOLAIR [Suspect]
     Active Substance: OMALIZUMAB
     Dosage: UNK
     Route: 058
     Dates: start: 20161229
  7. XOLAIR [Suspect]
     Active Substance: OMALIZUMAB
     Dosage: 450 MG, EVERY 4 WEEKS
     Route: 058
  8. XOLAIR [Suspect]
     Active Substance: OMALIZUMAB
     Indication: CHRONIC SPONTANEOUS URTICARIA
     Dosage: 300 MG, EVERY 4 WEEKS
     Route: 058
     Dates: start: 20150326
  9. XOLAIR [Suspect]
     Active Substance: OMALIZUMAB
     Dosage: UNK
     Route: 058
     Dates: start: 20160324
  10. XOLAIR [Suspect]
     Active Substance: OMALIZUMAB
     Dosage: 450 MG, EVERY 4 WEEKS
     Route: 058
     Dates: start: 20180125
  11. XOLAIR [Suspect]
     Active Substance: OMALIZUMAB
     Dosage: 450 MG, EVERY 4 WEEKS
     Route: 058
     Dates: start: 20190228
  12. CODEINE PHOSPHATE [Suspect]
     Active Substance: CODEINE PHOSPHATE
     Indication: PRODUCT USED FOR UNKNOWN INDICATION
     Route: 065
  13. XOLAIR [Suspect]
     Active Substance: OMALIZUMAB
     Dosage: UNK
     Route: 065
     Dates: start: 20180324

REACTIONS (26)
  - Swollen tongue [Recovered/Resolved]
  - Hypoaesthesia oral [Recovered/Resolved]
  - Lip pruritus [Unknown]
  - Paraesthesia [Unknown]
  - Cough [Unknown]
  - Hypoaesthesia oral [Recovering/Resolving]
  - Pain [Unknown]
  - Dysphonia [Unknown]
  - Hypersensitivity [Recovering/Resolving]
  - Skin plaque [Not Recovered/Not Resolved]
  - Throat tightness [Unknown]
  - Aphonia [Not Recovered/Not Resolved]
  - Therapeutic product effect incomplete [Unknown]
  - Cold urticaria [Not Recovered/Not Resolved]
  - Oropharyngeal pain [Unknown]
  - Oedema peripheral [Unknown]
  - Drug hypersensitivity [Unknown]
  - Paraesthesia oral [Recovered/Resolved]
  - Throat irritation [Unknown]
  - Peripheral swelling [Unknown]
  - Hyperthermia [Recovered/Resolved]
  - Hyperthermia [Unknown]
  - Temperature intolerance [Unknown]
  - Mouth swelling [Unknown]
  - Pain in extremity [Unknown]
  - Paraesthesia oral [Recovering/Resolving]

NARRATIVE: CASE EVENT DATE: 20150323
